FAERS Safety Report 10409662 (Version 1)
Quarter: 2014Q3

REPORT INFORMATION
  Report Type: Spontaneous
  Country: US (occurrence: None)
  Receive Date: 20140825
  Receipt Date: 20140825
  Transmission Date: 20150326
  Serious: Yes (Hospitalization)
  Sender: FDA-Public Use
  Company Number: None

PATIENT
  Age: 44 Year
  Sex: Female

DRUGS (16)
  1. ONDANSETRON [Concomitant]
     Active Substance: ONDANSETRON
  2. ACYCLOVIR. [Concomitant]
     Active Substance: ACYCLOVIR
  3. OMEPRAZOLE. [Concomitant]
     Active Substance: OMEPRAZOLE
  4. POTASSIUM CHLORIDE. [Concomitant]
     Active Substance: POTASSIUM CHLORIDE
  5. CYCLOBENZAPRINE [Concomitant]
     Active Substance: CYCLOBENZAPRINE
  6. POMALYST [Suspect]
     Active Substance: POMALIDOMIDE
     Indication: PLASMA CELL MYELOMA
     Dosage: 4MG?DAILY X21D/28D?ORALLY
     Route: 048
     Dates: start: 20140814, end: 20140818
  7. SENNOSIDES [Concomitant]
     Active Substance: SENNOSIDES
  8. DOCUSATE [Concomitant]
     Active Substance: DOCUSATE
  9. NORTRIPTYLINE [Concomitant]
     Active Substance: NORTRIPTYLINE
  10. MORPHINE [Concomitant]
     Active Substance: MORPHINE
  11. CEPHALEXIN. [Concomitant]
     Active Substance: CEPHALEXIN
  12. GABAPENTIN. [Concomitant]
     Active Substance: GABAPENTIN
  13. CIPROFLOXACIN. [Concomitant]
     Active Substance: CIPROFLOXACIN
  14. ALBUTEROL. [Concomitant]
     Active Substance: ALBUTEROL
  15. NORCO [Concomitant]
     Active Substance: ACETAMINOPHEN\HYDROCODONE BITARTRATE
  16. FENTANYL. [Concomitant]
     Active Substance: FENTANYL

REACTIONS (7)
  - Dyspnoea [None]
  - Dialysis [None]
  - Renal failure acute [None]
  - Abdominal pain [None]
  - Constipation [None]
  - Nausea [None]
  - Vomiting [None]

NARRATIVE: CASE EVENT DATE: 20140818
